FAERS Safety Report 4733678-3 (Version None)
Quarter: 2005Q3

REPORT INFORMATION
  Report Type: 
  Country: None (occurrence: None)
  Receive Date: 20050729
  Receipt Date: 20050603
  Transmission Date: 20060218
  Serious: No
  Sender: FDA-Public Use
  Company Number: COT_0086_2005

PATIENT
  Age: 61 Year
  Sex: Male
  Weight: 94.8018 kg

DRUGS (17)
  1. VENTAVIS [Suspect]
     Indication: PULMONARY HYPERTENSION
     Dosage: VAR UNK IH
     Route: 055
     Dates: start: 20050426
  2. VENTAVIS [Suspect]
  3. TRACLEER [Concomitant]
  4. ULTRACET [Concomitant]
  5. XALATAN [Concomitant]
  6. AVAPRO [Concomitant]
  7. CAMPRAL [Concomitant]
  8. ADVIL [Concomitant]
  9. ELAVIL [Concomitant]
  10. SYNTHROID [Concomitant]
  11. NORVASC [Concomitant]
  12. PREDNISONE [Concomitant]
  13. COSOPT [Concomitant]
  14. NEURONTIN [Concomitant]
  15. METHOCARBAMOL [Concomitant]
  16. PROZAC [Concomitant]
  17. ENBREL [Concomitant]

REACTIONS (1)
  - ORAL DISCOMFORT [None]
